FAERS Safety Report 5612204-0 (Version None)
Quarter: 2008Q1

REPORT INFORMATION
  Report Type: 
  Country: None (occurrence: None)
  Receive Date: 20080204
  Receipt Date: 20080125
  Transmission Date: 20080703
  Serious: Yes (Death)
  Sender: FDA-Public Use
  Company Number: JP-NOVOPROD-238646

PATIENT

DRUGS (9)
  1. NOVOSEVEN [Suspect]
     Indication: ACQUIRED HAEMOPHILIA WITH ANTI FVIII, XI, OR XIII
     Dosage: IN TOTAL 4.8 MG
     Route: 042
     Dates: start: 20040801, end: 20040801
  2. NOVOSEVEN [Suspect]
     Dosage: IN TOTAL 3.6 MG
     Route: 042
     Dates: start: 20040801, end: 20040801
  3. NOVOSEVEN [Suspect]
     Dosage: IN TOTAL 3.6 MG
     Route: 042
     Dates: start: 20040801, end: 20040801
  4. PREDONINE [Concomitant]
     Indication: ILL-DEFINED DISORDER
     Dosage: 60 MG, QD
     Route: 048
     Dates: start: 20040706, end: 20040729
  5. SOLU-MEDROL [Concomitant]
     Dosage: 500-1000-500 MG/DIV
     Dates: start: 20040730, end: 20040805
  6. RITUXAN [Concomitant]
     Dosage: 500 MG, BID, DIV
     Dates: start: 20040723, end: 20040723
  7. TRANSAMIN [Concomitant]
     Dosage: 2 G, QD, DIV
     Dates: start: 20040727, end: 20040805
  8. CATABON [Concomitant]
     Dosage: 3 ML/HR, DIV
     Dates: start: 20040730, end: 20040805
  9. DIGOSIN [Concomitant]
     Dosage: .25 MG, DIV
     Dates: start: 20040805, end: 20040805

REACTIONS (2)
  - ATRIAL FIBRILLATION [None]
  - CARDIAC FAILURE [None]
